FAERS Safety Report 16654925 (Version 3)
Quarter: 2019Q3

REPORT INFORMATION
  Report Type: Report from Study
  Country: FR (occurrence: FR)
  Receive Date: 20190801
  Receipt Date: 20190919
  Transmission Date: 20191004
  Serious: Yes (Death, Other)
  Sender: FDA-Public Use
  Company Number: FR-JAZZ-2019-FR-010498

PATIENT

DRUGS (1)
  1. DEFITELIO [Suspect]
     Active Substance: DEFIBROTIDE SODIUM
     Indication: VENOOCCLUSIVE LIVER DISEASE
     Dosage: 25 MG/KG, QD
     Route: 042
     Dates: start: 20160715, end: 20160721

REACTIONS (6)
  - Haemorrhage intracranial [Fatal]
  - Septic shock [Fatal]
  - Cardiotoxicity [Fatal]
  - Ischaemic stroke [Fatal]
  - Multiple organ dysfunction syndrome [Fatal]
  - Intentional product use issue [Fatal]

NARRATIVE: CASE EVENT DATE: 20160715
